FAERS Safety Report 24312754 (Version 1)
Quarter: 2024Q3

REPORT INFORMATION
  Report Type: Spontaneous
  Country: TR (occurrence: TR)
  Receive Date: 20240912
  Receipt Date: 20240912
  Transmission Date: 20241017
  Serious: Yes (Hospitalization, Other)
  Sender: SANOFI AVENTIS
  Company Number: TR-SA-2024SA262504

PATIENT
  Age: 75 Year
  Sex: Male
  Weight: 68 kg

DRUGS (11)
  1. ENOXAPARIN SODIUM [Suspect]
     Active Substance: ENOXAPARIN SODIUM
     Dosage: 0.6 ML, BID
  2. HEPARIN [Suspect]
     Active Substance: HEPARIN SODIUM
     Dosage: 1 MG/KG, ADMINISTERED CENTRALLY
     Route: 042
  3. HEPARIN [Suspect]
     Active Substance: HEPARIN SODIUM
     Dosage: 3 MG/KG
     Route: 042
  4. HEPARIN [Suspect]
     Active Substance: HEPARIN SODIUM
     Dosage: 50 MG
     Route: 042
  5. HEPARIN [Suspect]
     Active Substance: HEPARIN SODIUM
     Dosage: 50 MG OF HEPARIN FROM A VIAL OF A DIFFERENT BRAND
     Route: 042
  6. HEPARIN [Suspect]
     Active Substance: HEPARIN SODIUM
     Dosage: 50 MG
     Route: 042
  7. BIVALIRUDIN [Suspect]
     Active Substance: BIVALIRUDIN
     Dosage: 0.75 MG/KG
     Route: 040
  8. BIVALIRUDIN [Suspect]
     Active Substance: BIVALIRUDIN
     Dosage: 0.25 MG/KG
     Route: 040
  9. PERINDOPRIL [Concomitant]
     Active Substance: PERINDOPRIL
     Indication: Hypertension
     Dosage: UNK
  10. LEVOTHYROXINE [Concomitant]
     Active Substance: LEVOTHYROXINE\LEVOTHYROXINE SODIUM
     Indication: Hypothyroidism
     Dosage: UNK
  11. PANTOPRAZOLE [Concomitant]
     Active Substance: PANTOPRAZOLE
     Dosage: UNK

REACTIONS (5)
  - Cardiac tamponade [Recovered/Resolved]
  - Cardiac arrest [Recovered/Resolved]
  - Hypotension [Recovered/Resolved]
  - Procedural haemorrhage [Recovered/Resolved]
  - Drug resistance [Unknown]
